FAERS Safety Report 12160305 (Version 3)
Quarter: 2016Q3

REPORT INFORMATION
  Report Type: Report from Study
  Country: US (occurrence: US)
  Receive Date: 20160308
  Receipt Date: 20160824
  Transmission Date: 20161109
  Serious: Yes (Hospitalization)
  Sender: FDA-Public Use
  Company Number: US-BIOGEN-2015BI047555

PATIENT
  Age: 62 Year
  Sex: Female

DRUGS (4)
  1. TECFIDERA [Suspect]
     Active Substance: DIMETHYL FUMARATE
     Indication: MULTIPLE SCLEROSIS
     Route: 048
  2. TECFIDERA [Suspect]
     Active Substance: DIMETHYL FUMARATE
     Dosage: MAINTENANCE DOSE
     Route: 048
     Dates: start: 2013
  3. TECFIDERA [Suspect]
     Active Substance: DIMETHYL FUMARATE
     Route: 065
     Dates: start: 20130719
  4. TECFIDERA [Suspect]
     Active Substance: DIMETHYL FUMARATE
     Dosage: STARTING DOSE
     Route: 048
     Dates: start: 2013, end: 2013

REACTIONS (13)
  - Colostomy [Not Recovered/Not Resolved]
  - Blister [Recovered/Resolved]
  - Bladder perforation [Recovered/Resolved]
  - Bladder catheterisation [Not Recovered/Not Resolved]
  - Gastric disorder [Recovered/Resolved]
  - Blood count abnormal [Recovered/Resolved]
  - Decubitus ulcer [Not Recovered/Not Resolved]
  - Skin irritation [Unknown]
  - Skin lesion [Unknown]
  - Cholelithiasis [Recovered/Resolved]
  - Paralysis [Recovered/Resolved]
  - Nephrolithiasis [Recovered/Resolved]
  - Weight decreased [Recovered/Resolved]

NARRATIVE: CASE EVENT DATE: 2015
